FAERS Safety Report 14524426 (Version 3)
Quarter: 2018Q3

REPORT INFORMATION
  Report Type: Spontaneous
  Country: US (occurrence: US)
  Receive Date: 20180213
  Receipt Date: 20180702
  Transmission Date: 20181010
  Serious: Yes (Hospitalization, Other)
  Sender: FDA-Public Use
  Company Number: US-PFIZER INC-2018061522

PATIENT
  Age: 75 Year
  Sex: Female
  Weight: 64 kg

DRUGS (1)
  1. IBRANCE [Suspect]
     Active Substance: PALBOCICLIB
     Indication: BREAST CANCER METASTATIC
     Dosage: 125 MG, CYCLIC (DAYS 1?21 Q 28 DAYS)
     Route: 048
     Dates: start: 20170306

REACTIONS (6)
  - Aphasia [Unknown]
  - Cerebrovascular accident [Unknown]
  - Hypertension [Unknown]
  - Alopecia [Not Recovered/Not Resolved]
  - Transient ischaemic attack [Unknown]
  - Intracranial aneurysm [Unknown]
